FAERS Safety Report 21295930 (Version 1)
Quarter: 2022Q3

REPORT INFORMATION
  Report Type: Spontaneous
  Country: US (occurrence: US)
  Receive Date: 20220906
  Receipt Date: 20220906
  Transmission Date: 20221027
  Serious: Yes (Hospitalization, Other)
  Sender: FDA-Public Use
  Company Number: US-TEVA-2021-US-1958324

PATIENT
  Age: 61 Year
  Sex: Male
  Weight: 65 kg

DRUGS (6)
  1. PREDNISONE [Suspect]
     Active Substance: PREDNISONE
     Indication: Immunosuppressant drug therapy
     Route: 048
  2. MYCOPHENOLIC ACID [Suspect]
     Active Substance: MYCOPHENOLIC ACID
     Indication: Immunosuppressant drug therapy
     Dosage: UNKNOWN
     Route: 065
  3. TACROLIMUS [Suspect]
     Active Substance: TACROLIMUS
     Indication: Immunosuppressant drug therapy
     Dosage: UNKNOWN
     Route: 065
  4. PENICILLIN G BENZATHINE [Concomitant]
     Active Substance: PENICILLIN G BENZATHINE
     Indication: Latent syphilis
     Dosage: UNKNOWN
     Route: 065
  5. ISONIAZID [Concomitant]
     Active Substance: ISONIAZID
     Indication: Latent tuberculosis
     Dosage: UNKNOWN
     Route: 065
  6. VITAMIN B6 [Concomitant]
     Active Substance: PYRIDOXINE HYDROCHLORIDE
     Indication: Latent tuberculosis
     Dosage: UNKNOWN
     Route: 065

REACTIONS (3)
  - Hyponatraemia [Recovering/Resolving]
  - Strongyloidiasis [Recovering/Resolving]
  - Klebsiella bacteraemia [Recovering/Resolving]
